FAERS Safety Report 9505499 (Version 1)
Quarter: 2013Q1

REPORT INFORMATION
  Report Type: Spontaneous
  Country: US (occurrence: None)
  Receive Date: 20130220
  Receipt Date: 20130220
  Transmission Date: 20140127
  Serious: No
  Sender: FDA-Public Use
  Company Number: 1000041528

PATIENT
  Age: 78 Year
  Sex: Female

DRUGS (2)
  1. VIIBRYD (VILAZODONE HYDROCHLORIDE) [Suspect]
     Indication: DEPRESSION
     Dosage: 10MG, (10 MG, 1 IN 1 D), , ORAL
     Route: 048
     Dates: start: 20121211, end: 20121217
  2. ALPRAZOLAM (ALPRAZOLAM) (ALPRAZOLAM) [Concomitant]

REACTIONS (2)
  - Palpitations [None]
  - Insomnia [None]
